FAERS Safety Report 5647259-0 (Version None)
Quarter: 2008Q1

REPORT INFORMATION
  Report Type: 
  Country: None (occurrence: None)
  Receive Date: 20080303
  Receipt Date: 20080219
  Transmission Date: 20080703
  Serious: Yes (Hospitalization, Other)
  Sender: FDA-Public Use
  Company Number: PHBS2008US02780

PATIENT
  Sex: Female

DRUGS (11)
  1. SULFAMETHOXAZOLE AND TRIMETHOPRIM [Concomitant]
  2. MYCOPHENOLATE MOFETIL [Suspect]
     Indication: HEART TRANSPLANT
     Dosage: 1500 MG, BID
  3. MYCOPHENOLATE MOFETIL [Suspect]
     Dosage: 500 MG, BID
  4. FRESH FROZEN PLASMA [Concomitant]
     Dosage: 47 U IN TOTAL
  5. RED BLOOD CELLS [Concomitant]
     Dosage: 76 U IN TOTAL
  6. CRYOPRECIPITATES [Concomitant]
     Dosage: 3 U IN TOTAL
  7. PLATELETS [Concomitant]
     Dosage: 8 U IN TOTAL
  8. METHYLPREDNISOLONE [Concomitant]
     Dosage: 1 G, TID
  9. PREDNISONE TAB [Concomitant]
     Dosage: 5 MG/DAY
  10. SIMVASTATIN [Concomitant]
     Indication: DYSLIPIDAEMIA
     Dosage: 10 MG/DAY
  11. CYCLOSPORINE [Suspect]
     Indication: HEART TRANSPLANT

REACTIONS (16)
  - ATRIAL FLUTTER [None]
  - CARDIAC FAILURE [None]
  - CARDIAC TAMPONADE [None]
  - CD4 LYMPHOCYTES DECREASED [None]
  - COAGULOPATHY [None]
  - CREATININE RENAL CLEARANCE DECREASED [None]
  - DEEP VEIN THROMBOSIS [None]
  - EJECTION FRACTION DECREASED [None]
  - HAEMATOMA [None]
  - HAEMORRHAGIC CEREBRAL INFARCTION [None]
  - HEART TRANSPLANT REJECTION [None]
  - HIV INFECTION [None]
  - HYPERTENSION [None]
  - LEUKOPENIA [None]
  - RENAL FAILURE ACUTE [None]
  - VENTRICULAR DYSFUNCTION [None]
